FAERS Safety Report 14242728 (Version 1)
Quarter: 2017Q4

REPORT INFORMATION
  Report Type: Spontaneous
  Country: US (occurrence: US)
  Receive Date: 20171201
  Receipt Date: 20171201
  Transmission Date: 20180321
  Serious: Yes (Hospitalization, Other)
  Sender: FDA-Public Use
  Company Number: US-009507513-1711USA012281

PATIENT
  Sex: Male

DRUGS (11)
  1. INTRON A [Suspect]
     Active Substance: INTERFERON ALFA-2B
     Dosage: STRENGTH: 18 MU; 3 MU(0.5 ML), TIW
     Dates: start: 20131204
  2. INTRON A [Suspect]
     Active Substance: INTERFERON ALFA-2B
     Indication: MYCOSIS FUNGOIDES
     Dosage: STRENGTH: 18 MU; 3 MU(0.5 ML), TIW
     Route: 058
     Dates: start: 20131204
  3. IRON (UNSPECIFIED) [Concomitant]
     Active Substance: IRON
  4. ZANTAC [Concomitant]
     Active Substance: RANITIDINE HYDROCHLORIDE
  5. ARANESP [Concomitant]
     Active Substance: DARBEPOETIN ALFA
  6. ATORVASTATIN [Concomitant]
     Active Substance: ATORVASTATIN
  7. LOSARTAN POTASSIUM TABLETS [Concomitant]
     Active Substance: LOSARTAN POTASSIUM
  8. MULTIVIT [Concomitant]
     Active Substance: VITAMINS
  9. METFORMIN [Concomitant]
     Active Substance: METFORMIN HYDROCHLORIDE
  10. ZYRTEC [Concomitant]
     Active Substance: CETIRIZINE HYDROCHLORIDE
  11. OMEGA-3 MARINE TRIGLYCERIDES [Concomitant]
     Active Substance: FISH OIL

REACTIONS (2)
  - Vascular operation [Not Recovered/Not Resolved]
  - Drug dose omission [Unknown]

NARRATIVE: CASE EVENT DATE: 2017
